FAERS Safety Report 17970282 (Version 1)
Quarter: 2020Q3

REPORT INFORMATION
  Report Type: Spontaneous
  Country: ES (occurrence: ES)
  Receive Date: 20200701
  Receipt Date: 20200701
  Transmission Date: 20201103
  Serious: Yes (Other)
  Sender: FDA-Public Use
  Company Number: ES-SA-2020SA164956

PATIENT

DRUGS (7)
  1. TEICOPLANIN [Suspect]
     Active Substance: TEICOPLANIN
     Indication: INTESTINAL PERFORATION
     Dosage: UNK
     Route: 065
     Dates: start: 20200521
  2. OXALIPLATIN. [Suspect]
     Active Substance: OXALIPLATIN
     Indication: ADENOCARCINOMA OF COLON
     Dosage: 1 DF, 1X
     Route: 065
     Dates: start: 20200508
  3. PIPERACILLIN SODIUM/TAZOBACTAM SODIUM [Suspect]
     Active Substance: PIPERACILLIN SODIUM\TAZOBACTAM SODIUM
     Indication: INTESTINAL PERFORATION
     Dosage: UNK
     Route: 065
     Dates: start: 20200518, end: 20200521
  4. MEROPENEM. [Suspect]
     Active Substance: MEROPENEM
     Indication: INTESTINAL PERFORATION
     Dosage: UNK
     Route: 065
     Dates: start: 20200521
  5. CALCIUM FOLINATE [Suspect]
     Active Substance: LEUCOVORIN CALCIUM
     Indication: ADENOCARCINOMA OF COLON
     Dosage: 1 DF, 1X
     Route: 065
     Dates: start: 20200508
  6. FLUOROURACIL. [Suspect]
     Active Substance: FLUOROURACIL
     Indication: ADENOCARCINOMA OF COLON
     Dosage: 1 DF, 1X
     Route: 065
     Dates: start: 20200508
  7. CEFTRIAXONE. [Suspect]
     Active Substance: CEFTRIAXONE
     Indication: INTESTINAL PERFORATION
     Route: 065
     Dates: start: 20200516, end: 20200518

REACTIONS (1)
  - Toxic skin eruption [Unknown]

NARRATIVE: CASE EVENT DATE: 202005
